FAERS Safety Report 7704273-9 (Version None)
Quarter: 2011Q3

REPORT INFORMATION
  Report Type: 
  Country: None (occurrence: None)
  Receive Date: 20110823
  Receipt Date: 20110815
  Transmission Date: 20111222
  Serious: Yes (Other)
  Sender: FDA-Public Use
  Company Number: PHHY2011BR73984

PATIENT
  Age: 55 Year
  Sex: Female

DRUGS (1)
  1. VOLTAREN [Suspect]
     Indication: SINUSITIS
     Dosage: EVERY 6 HOURS
     Route: 048
     Dates: start: 19780101, end: 19900101

REACTIONS (7)
  - MIGRAINE [None]
  - HUNGER [None]
  - ULCER [None]
  - INFLAMMATION [None]
  - OSTEOARTHRITIS [None]
  - ABDOMINAL PAIN UPPER [None]
  - REFLUX GASTRITIS [None]
